FAERS Safety Report 7647343-6 (Version None)
Quarter: 2011Q3

REPORT INFORMATION
  Report Type: 
  Country: None (occurrence: None)
  Receive Date: 20110726
  Receipt Date: 20110721
  Transmission Date: 20111222
  Serious: Yes (Life-Threatening, Hospitalization)
  Sender: FDA-Public Use
  Company Number: 2011SP012632

PATIENT
  Age: 38 Year
  Sex: Female

DRUGS (2)
  1. PUREGON (FOLLITROPIN BETA /01348901/) [Suspect]
     Indication: PRODUCT USED FOR UNKNOWN INDICATION
     Dosage: 200 IU;QD;SC
     Route: 058
     Dates: start: 20100916, end: 20100926
  2. CHORIONIC GONADOTROPIN [Suspect]
     Indication: PRODUCT USED FOR UNKNOWN INDICATION
     Dosage: 5000 IU;ONCE;IM
     Route: 030
     Dates: start: 20100927, end: 20100927

REACTIONS (4)
  - VOMITING [None]
  - OVARIAN TORSION [None]
  - GASTROINTESTINAL PERFORATION [None]
  - OVARIAN HYPERSTIMULATION SYNDROME [None]
